FAERS Safety Report 8196846-7 (Version None)
Quarter: 2012Q1

REPORT INFORMATION
  Report Type: 
  Country: None (occurrence: None)
  Receive Date: 20120227
  Receipt Date: 20120102
  Transmission Date: 20120608
  Serious: Yes (Hospitalization)
  Sender: FDA-Public Use
  Company Number: 335169

PATIENT
  Age: 54 Year
  Sex: Female
  Weight: 118.4 kg

DRUGS (10)
  1. CYMBALTA [Concomitant]
  2. LANTUS [Concomitant]
  3. VERAPAMIL [Concomitant]
  4. VICTOZA [Suspect]
     Indication: TYPE 2 DIABETES MELLITUS
     Dosage: 0.6 MG, QD, SUBCUTANEOUS 1.2 MG, QD, SUBCUTANEOUS
     Route: 058
     Dates: start: 20101012
  5. VICTOZA [Suspect]
     Indication: TYPE 2 DIABETES MELLITUS
     Dosage: 0.6 MG, QD, SUBCUTANEOUS 1.2 MG, QD, SUBCUTANEOUS
     Route: 058
     Dates: end: 20110629
  6. ASPIRIN [Concomitant]
  7. METFORMIN HCL [Concomitant]
  8. HUMALOG [Concomitant]
  9. LISINOPRIL [Concomitant]
  10. HYDROCHLOROTHIAZIDE [Concomitant]

REACTIONS (1)
  - PANCREATITIS ACUTE [None]
